FAERS Safety Report 8008512-9 (Version None)
Quarter: 2011Q4

REPORT INFORMATION
  Report Type: 
  Country: None (occurrence: None)
  Receive Date: 20111227
  Receipt Date: 20111216
  Transmission Date: 20120403
  Serious: Yes (Other)
  Sender: FDA-Public Use
  Company Number: US-ASTRAZENECA-2011SE76305

PATIENT
  Sex: Female

DRUGS (1)
  1. BUDESONIDE [Suspect]
     Route: 055
     Dates: start: 20111201

REACTIONS (2)
  - STREPTOCOCCAL INFECTION [None]
  - PYREXIA [None]
